FAERS Safety Report 23580165 (Version 1)
Quarter: 2024Q1

REPORT INFORMATION
  Report Type: Other
  Country: GB (occurrence: GB)
  Receive Date: 20240229
  Receipt Date: 20240229
  Transmission Date: 20240410
  Serious: Yes (Life-Threatening, Hospitalization, Other)
  Sender: FDA-Public Use
  Company Number: None

PATIENT
  Age: 83 Year
  Sex: Male

DRUGS (2)
  1. MIRABEGRON [Suspect]
     Active Substance: MIRABEGRON
     Indication: Bladder disorder
     Dosage: 25 MG, ONCE DAILY, (AT NIGHT)
     Route: 065
     Dates: start: 20240205, end: 20240220
  2. NEBIVOLOL [Concomitant]
     Active Substance: NEBIVOLOL
     Indication: Arrhythmia supraventricular
     Dosage: UNK UNK, UNKNOWN FREQ.
     Route: 065
     Dates: start: 20190209

REACTIONS (2)
  - Ischaemic stroke [Not Recovered/Not Resolved]
  - Medication error [Unknown]

NARRATIVE: CASE EVENT DATE: 20240220
